FAERS Safety Report 4600986-6 (Version None)
Quarter: 2005Q1

REPORT INFORMATION
  Report Type: 
  Country: None (occurrence: None)
  Receive Date: 20050307
  Receipt Date: 20050307
  Transmission Date: 20050727
  Serious: Yes (Life-Threatening, Other)
  Sender: FDA-Public Use
  Company Number: None

PATIENT
  Age: 39 Year
  Sex: Female
  Weight: 46.7205 kg

DRUGS (2)
  1. TAXOL [Suspect]
     Indication: BREAST CANCER
     Dosage: 175/M2 257 MG IV
     Route: 042
     Dates: start: 20050103
  2. NEULASTA [Suspect]
     Dosage: 6 MG SQ
     Route: 058
     Dates: start: 20050104

REACTIONS (2)
  - NEUTROPENIA [None]
  - RASH [None]
